FAERS Safety Report 24667867 (Version 1)
Quarter: 2024Q4

REPORT INFORMATION
  Report Type: Spontaneous
  Country: US (occurrence: US)
  Receive Date: 20241127
  Receipt Date: 20241127
  Transmission Date: 20250115
  Serious: Yes (Other)
  Sender: AMGEN
  Company Number: US-AMGEN-USASP2024232638

PATIENT
  Age: 21 Year
  Sex: Male

DRUGS (3)
  1. ADALIMUMAB [Suspect]
     Active Substance: ADALIMUMAB
     Indication: Crohn^s disease
     Dosage: UNK
     Route: 065
  2. PREDNISONE [Suspect]
     Active Substance: PREDNISONE
     Indication: IgA nephropathy
     Dosage: 40 MILLIGRAM
     Route: 065
  3. PREDNISONE [Suspect]
     Active Substance: PREDNISONE
     Dosage: SLOW PREDNISONE TAPER
     Route: 065

REACTIONS (5)
  - IgA nephropathy [Unknown]
  - Tubulointerstitial nephritis [Unknown]
  - Oropharyngeal pain [Unknown]
  - Drug effective for unapproved indication [Unknown]
  - Off label use [Unknown]
